FAERS Safety Report 11856007 (Version 1)
Quarter: 2015Q4

REPORT INFORMATION
  Report Type: Spontaneous
  Country: US (occurrence: US)
  Receive Date: 20151221
  Receipt Date: 20151221
  Transmission Date: 20160305
  Serious: Yes (Other)
  Sender: FDA-Public Use
  Company Number: US-BANPHARM-20154495

PATIENT
  Age: 73 Year
  Sex: Female
  Weight: 59.87 kg

DRUGS (4)
  1. ALEVE [Suspect]
     Active Substance: NAPROXEN SODIUM
     Indication: PAIN
     Dosage: 1-2 DF, PRN,
     Route: 048
     Dates: start: 2012, end: 20150101
  2. HYDROCHLOROTHIAZIDE. [Concomitant]
     Active Substance: HYDROCHLOROTHIAZIDE
  3. LISINOPRIL. [Concomitant]
     Active Substance: LISINOPRIL
  4. BAYER LOW DOSE [Suspect]
     Active Substance: ASPIRIN
     Dosage: 1 DF, QD,
     Route: 048
     Dates: start: 2008, end: 20151201

REACTIONS (1)
  - Cerebrovascular accident [Recovered/Resolved]
